FAERS Safety Report 17271288 (Version 7)
Quarter: 2024Q4

REPORT INFORMATION
  Report Type: Spontaneous
  Country: IT (occurrence: IT)
  Receive Date: 20200115
  Receipt Date: 20241113
  Transmission Date: 20250114
  Serious: Yes (Hospitalization, Other)
  Sender: PFIZER
  Company Number: None

PATIENT
  Age: 79 Year
  Sex: Female

DRUGS (11)
  1. RAMIPRIL [Suspect]
     Active Substance: RAMIPRIL
     Indication: Drug abuse
     Dosage: 10 MG, TOTAL
     Route: 048
     Dates: start: 20191124, end: 20191124
  2. VENLAFAXINE HCL [Suspect]
     Active Substance: VENLAFAXINE HYDROCHLORIDE
     Indication: Drug abuse
     Dosage: 2 DF, TOTAL
     Route: 048
     Dates: start: 20191124, end: 20191124
  3. PREGABALIN [Suspect]
     Active Substance: PREGABALIN
     Dosage: 2 DF, TOTAL
     Route: 048
     Dates: start: 20191124, end: 20191124
  4. BISOPROLOL FUMARATE [Suspect]
     Active Substance: BISOPROLOL FUMARATE
     Indication: Drug abuse
     Dosage: 10 MG, SINGLE
     Route: 048
     Dates: start: 20191124, end: 20191124
  5. METFORMIN HYDROCHLORIDE [Suspect]
     Active Substance: METFORMIN HYDROCHLORIDE
     Indication: Drug abuse
     Dosage: 10 G, TOTAL
     Route: 048
     Dates: start: 20191124, end: 20191124
  6. ASPIRIN [Suspect]
     Active Substance: ASPIRIN
     Indication: Drug abuse
     Dosage: 200 MG, TOTAL
     Route: 048
     Dates: start: 20191124, end: 20191124
  7. LASIX [Suspect]
     Active Substance: FUROSEMIDE
     Indication: Drug abuse
     Dosage: 100 MG, TOTAL
     Route: 048
     Dates: start: 20191124, end: 20191124
  8. ALLOPURINOL [Suspect]
     Active Substance: ALLOPURINOL
     Indication: Drug abuse
     Dosage: 2 DF, TOTAL
     Route: 048
     Dates: start: 20191124, end: 20191124
  9. CANRENOATE POTASSIUM [Suspect]
     Active Substance: CANRENOATE POTASSIUM
     Indication: Drug abuse
     Dosage: 100 MG, TOTAL
     Route: 048
     Dates: start: 20191124, end: 20191124
  10. FERROUS SULFATE [Suspect]
     Active Substance: FERROUS SULFATE
     Indication: Drug abuse
     Dosage: 210 MG, TOTAL
     Route: 048
     Dates: start: 20191124, end: 20191124
  11. BARNIDIPINE HYDROCHLORIDE [Suspect]
     Active Substance: BARNIDIPINE HYDROCHLORIDE
     Indication: Drug abuse
     Dosage: 40 MG, TOTAL
     Route: 048
     Dates: start: 20191124, end: 20191124

REACTIONS (3)
  - Sopor [Recovering/Resolving]
  - Drug abuse [Recovering/Resolving]
  - Lactic acidosis [Recovering/Resolving]

NARRATIVE: CASE EVENT DATE: 20191124
